FAERS Safety Report 21618055 (Version 1)
Quarter: 2022Q4

REPORT INFORMATION
  Report Type: Spontaneous
  Country: US (occurrence: None)
  Receive Date: 20221119
  Receipt Date: 20221119
  Transmission Date: 20230113
  Serious: No
  Sender: FDA-Public Use
  Company Number: 2022A357317

PATIENT
  Age: 52 Year

DRUGS (1)
  1. BYDUREON BCISE [Suspect]
     Active Substance: EXENATIDE
     Indication: Type 2 diabetes mellitus
     Route: 058
     Dates: start: 20220929

REACTIONS (6)
  - Sciatica [Unknown]
  - Nausea [Unknown]
  - Injection site pain [Unknown]
  - Injection site haemorrhage [Unknown]
  - Injection site haematoma [Unknown]
  - Injection site warmth [Unknown]

NARRATIVE: CASE EVENT DATE: 20220101
